FAERS Safety Report 15802144 (Version 1)
Quarter: 2019Q1

REPORT INFORMATION
  Report Type: Spontaneous
  Country: US (occurrence: US)
  Receive Date: 20190109
  Receipt Date: 20190109
  Transmission Date: 20190417
  Serious: No
  Sender: FDA-Public Use
  Company Number: US-009507513-1812USA011206

PATIENT
  Age: 29 Year
  Sex: Female
  Weight: 130 kg

DRUGS (2)
  1. NEXPLANON [Suspect]
     Active Substance: ETONOGESTREL
     Indication: CONTRACEPTION
     Dosage: 68 MILLIGRAM, 3 YEARS
     Route: 059
     Dates: start: 20181221
  2. MICRONOR [Concomitant]
     Active Substance: NORETHINDRONE

REACTIONS (1)
  - Breast feeding [Unknown]

NARRATIVE: CASE EVENT DATE: 20181221
